FAERS Safety Report 25914798 (Version 2)
Quarter: 2025Q4

REPORT INFORMATION
  Report Type: Spontaneous
  Country: US (occurrence: US)
  Receive Date: 20251013
  Receipt Date: 20251107
  Transmission Date: 20260118
  Serious: No
  Sender: SANOFI AVENTIS
  Company Number: US-SA-2025SA302807

PATIENT
  Age: 68 Year
  Sex: Female

DRUGS (27)
  1. DUPIXENT [Suspect]
     Active Substance: DUPILUMAB
     Indication: Arteriosclerosis
     Dosage: 300 MG, QOW
     Route: 058
  2. DUPIXENT [Suspect]
     Active Substance: DUPILUMAB
     Indication: Chronic obstructive pulmonary disease
  3. ALBUTEROL SULFATE [Concomitant]
     Active Substance: ALBUTEROL SULFATE
     Dosage: UNK; AER 108,90
  4. AMLODIPINE BESYLATE [Concomitant]
     Active Substance: AMLODIPINE BESYLATE
  5. ASPIRIN [Concomitant]
     Active Substance: ASPIRIN
     Dosage: UNK, CHE
  6. AZELASTINE HYDROCHLORIDE [Concomitant]
     Active Substance: AZELASTINE HYDROCHLORIDE
     Dosage: UNK; 137 MCG/S
  7. B12 [Concomitant]
     Dosage: UNK
  8. CLOPIDOGREL [Concomitant]
     Active Substance: CLOPIDOGREL BISULFATE
  9. VITAMIN D3 [Concomitant]
     Active Substance: CHOLECALCIFEROL
     Dosage: UNK; 50 MCG
  10. DALIRESP [Concomitant]
     Active Substance: ROFLUMILAST
     Dosage: UNK
  11. DULOXETINE HYDROCHLORIDE [Concomitant]
     Active Substance: DULOXETINE HYDROCHLORIDE
     Dosage: UNK
  12. FERROUS SULFATE [Concomitant]
     Active Substance: FERROUS SULFATE
     Dosage: UNK; 65
  13. FLUTICASONE [Concomitant]
     Active Substance: FLUTICASONE
     Dosage: UNK; 50 MCG/AC
  14. LEVOTHYROXINE [Concomitant]
     Active Substance: LEVOTHYROXINE
     Dosage: UNK
  15. LISINOPRIL [Concomitant]
     Active Substance: LISINOPRIL
  16. LYRICA [Concomitant]
     Active Substance: PREGABALIN
  17. MAGNESIUM [Concomitant]
     Active Substance: MAGNESIUM
  18. MECLIZINE HYDROCHLORIDE [Concomitant]
     Active Substance: MECLIZINE HYDROCHLORIDE
  19. MELATONIN [Concomitant]
     Active Substance: MELATONIN
  20. METAXALONE [Concomitant]
     Active Substance: METAXALONE
  21. METOPROLOL SUCCINATE [Concomitant]
     Active Substance: METOPROLOL SUCCINATE
  22. Nasacort allergo [Concomitant]
     Dosage: UNK; 55 MCG/AC
  23. OXYCODONE HYDROCHLORIDE [Concomitant]
     Active Substance: OXYCODONE HYDROCHLORIDE
  24. PANTOPRAZOLE [Concomitant]
     Active Substance: PANTOPRAZOLE
  25. RANOLAZINE [Concomitant]
     Active Substance: RANOLAZINE
  26. TRELEGY ELLIPTA [Concomitant]
     Active Substance: FLUTICASONE FUROATE\UMECLIDINIUM BROMIDE\VILANTEROL TRIFENATATE
     Dosage: UNK; 100-62.5
  27. TRIAMTERENE [Concomitant]
     Active Substance: TRIAMTERENE
     Dosage: 75-50MG

REACTIONS (2)
  - Productive cough [Unknown]
  - Product use in unapproved indication [Unknown]
